FAERS Safety Report 24867082 (Version 2)
Quarter: 2025Q1

REPORT INFORMATION
  Report Type: Spontaneous
  Country: US (occurrence: US)
  Receive Date: 20250121
  Receipt Date: 20250128
  Transmission Date: 20250409
  Serious: Yes (Other)
  Sender: LEO PHARM
  Company Number: US-LEO Pharma-376985

PATIENT
  Age: 47 Year
  Sex: Male

DRUGS (2)
  1. ADBRY [Suspect]
     Active Substance: TRALOKINUMAB-LDRM
     Indication: Dermatitis
     Dates: start: 202412
  2. ADBRY [Suspect]
     Active Substance: TRALOKINUMAB-LDRM
     Indication: Dermatitis

REACTIONS (3)
  - Rhinorrhoea [Unknown]
  - Vision blurred [Unknown]
  - Surgery [Unknown]

NARRATIVE: CASE EVENT DATE: 20250115
